FAERS Safety Report 5470121-3 (Version None)
Quarter: 2007Q3

REPORT INFORMATION
  Report Type: 
  Country: None (occurrence: None)
  Receive Date: 20070924
  Receipt Date: 20070912
  Transmission Date: 20080115
  Serious: Yes (Other)
  Sender: FDA-Public Use
  Company Number: 237783K07USA

PATIENT
  Age: 50 Year
  Sex: Male
  Weight: 95.2554 kg

DRUGS (6)
  1. REBIF [Suspect]
     Indication: MULTIPLE SCLEROSIS
     Dosage: 44 MCG, 3 IN 1 WEEKS, SUBCUTANEOUS
     Route: 058
     Dates: start: 20060214
  2. TRAMADOL                (TRAMADOL /0059201/) [Concomitant]
  3. EFFEXOR [Concomitant]
  4. NABUMETONE [Concomitant]
  5. CORTISONE              (CORTISONE /00014601/) [Concomitant]
  6. TRIAMTERENE            (TRIAMTERENE) [Concomitant]

REACTIONS (1)
  - GLUCOSE TOLERANCE IMPAIRED [None]
